FAERS Safety Report 8383997 (Version 2)
Quarter: 2012Q4

REPORT INFORMATION
  Report Type: 
  Country: US (occurrence: US)
  Receive Date: 20120201
  Receipt Date: 20121203
  Transmission Date: 20130627
  Serious: Yes (Other)
  Sender: FDA-Public Use
  Company Number: US-PFIZER INC-2012025727

PATIENT
  Age: 41 Year
  Sex: Female
  Weight: 58.5 kg

DRUGS (5)
  1. LYRICA [Suspect]
     Indication: NEURALGIA
     Dosage: 150 mg, daily (at night)
     Dates: start: 2010
  2. TRILEPTAL [Suspect]
     Indication: NEURALGIA
     Dosage: 300 mg, 3x/day
     Dates: start: 20120910
  3. TRILEPTAL [Suspect]
     Dosage: 300 mg, 2x/day
     Dates: start: 2012
  4. TOPAMAX [Suspect]
     Indication: MIGRAINE
     Dosage: 200 mg, 2x/day
     Dates: start: 2006
  5. EFFEXOR [Concomitant]
     Indication: DEPRESSION
     Dosage: 75 mg, 2x/day

REACTIONS (7)
  - Mental status changes [Unknown]
  - Dizziness [Not Recovered/Not Resolved]
  - Trigeminal neuralgia [Unknown]
  - Migraine [Unknown]
  - General physical condition abnormal [Unknown]
  - Inappropriate schedule of drug administration [Unknown]
  - Overdose [Unknown]
